FAERS Safety Report 14640841 (Version 14)
Quarter: 2022Q2

REPORT INFORMATION
  Report Type: Spontaneous
  Country: GR (occurrence: GR)
  Receive Date: 20180315
  Receipt Date: 20220502
  Transmission Date: 20220721
  Serious: Yes (Death, Life-Threatening, Other)
  Sender: FDA-Public Use
  Company Number: GR-PHARMATHEN-GPV2018PHT025100

PATIENT
  Age: 25 Year
  Sex: Male

DRUGS (18)
  1. FLUOXETINE HYDROCHLORIDE [Interacting]
     Active Substance: FLUOXETINE HYDROCHLORIDE
     Indication: Depression
     Dosage: UNK UNK, UNKNOWN
     Route: 065
  2. FLUOXETINE HYDROCHLORIDE [Interacting]
     Active Substance: FLUOXETINE HYDROCHLORIDE
     Indication: Overdose
  3. CITALOPRAM [Interacting]
     Active Substance: CITALOPRAM HYDROBROMIDE
     Indication: Depression
     Dosage: UNK UNK, UNKNOWN
     Route: 065
  4. CITALOPRAM [Interacting]
     Active Substance: CITALOPRAM HYDROBROMIDE
     Indication: Overdose
  5. FLURBIPROFEN [Interacting]
     Active Substance: FLURBIPROFEN
     Indication: Overdose
     Dosage: UNK, UNKNOWN
     Route: 065
  6. MOCLOBEMIDE [Interacting]
     Active Substance: MOCLOBEMIDE
     Indication: Depression
     Dosage: OVERDOSE, UNKNOWN
     Route: 065
  7. MOCLOBEMIDE [Interacting]
     Active Substance: MOCLOBEMIDE
     Indication: Overdose
  8. SEROPRAM (CITALOPRAM HYDROBROMIDE) [Interacting]
     Active Substance: CITALOPRAM HYDROBROMIDE
     Indication: Depression
     Dosage: UNK, UNKNOWN
     Route: 065
  9. SEROPRAM (CITALOPRAM HYDROBROMIDE) [Interacting]
     Active Substance: CITALOPRAM HYDROBROMIDE
     Indication: Overdose
  10. VALPROIC ACID [Interacting]
     Active Substance: VALPROIC ACID
     Indication: Depression
     Dosage: UNK UNK, UNKNOWN
     Route: 048
  11. VALPROIC ACID [Interacting]
     Active Substance: VALPROIC ACID
     Indication: Overdose
  12. QUETIAPINE [Interacting]
     Active Substance: QUETIAPINE
     Indication: Depression
     Dosage: UNK UNK, UNKNOWN
     Route: 048
  13. QUETIAPINE [Interacting]
     Active Substance: QUETIAPINE
     Indication: Overdose
  14. ALPRAZOLAM [Interacting]
     Active Substance: ALPRAZOLAM
     Indication: Depression
     Dosage: UNK UNK, UNKNOWN
     Route: 048
  15. ALPRAZOLAM [Interacting]
     Active Substance: ALPRAZOLAM
     Indication: Overdose
  16. PERINDOPRIL [Interacting]
     Active Substance: PERINDOPRIL
     Indication: Overdose
     Dosage: UNK, UNKNOWN
     Route: 065
  17. PROPRANOLOL [Interacting]
     Active Substance: PROPRANOLOL HYDROCHLORIDE
     Indication: Overdose
     Dosage: UNK, UNKNOWN
     Route: 065
  18. DESLORATADINE [Interacting]
     Active Substance: DESLORATADINE
     Indication: Overdose
     Dosage: UNK, UNKNOWN
     Route: 065

REACTIONS (9)
  - Arrhythmia [Fatal]
  - Toxicity to various agents [Fatal]
  - Drug interaction [Fatal]
  - Sudden death [Fatal]
  - Ischaemic cerebral infarction [Fatal]
  - Hypertrophic cardiomyopathy [Fatal]
  - Contraindicated product administered [Fatal]
  - Electrocardiogram QT prolonged [Fatal]
  - Intentional overdose [Fatal]
